FAERS Safety Report 16713191 (Version 2)
Quarter: 2019Q3

REPORT INFORMATION
  Report Type: Spontaneous
  Country: AU (occurrence: AU)
  Receive Date: 20190817
  Receipt Date: 20190820
  Transmission Date: 20191004
  Serious: Yes (Other)
  Sender: FDA-Public Use
  Company Number: AU-009507513-1908AUS002539

PATIENT
  Sex: Male

DRUGS (2)
  1. THERAPY UNSPECIFIED [Suspect]
     Active Substance: UNSPECIFIED INGREDIENT
     Dosage: ONCE A WEEK
  2. RIBAVIRIN (+) SODIUM CHLORIDE [Suspect]
     Active Substance: RIBAVIRIN

REACTIONS (4)
  - Influenza like illness [Unknown]
  - Hepatic cirrhosis [Recovered/Resolved]
  - Drug ineffective [Unknown]
  - Post-traumatic stress disorder [Unknown]

NARRATIVE: CASE EVENT DATE: 2011
